FAERS Safety Report 9912796 (Version 1)
Quarter: 2014Q1

REPORT INFORMATION
  Report Type: Spontaneous
  Country: US (occurrence: None)
  Receive Date: 20140218
  Receipt Date: 20140218
  Transmission Date: 20141002
  Serious: No
  Sender: FDA-Public Use
  Company Number: None

PATIENT
  Age: 36 Year
  Sex: Female
  Weight: 69.4 kg

DRUGS (2)
  1. PROVIGIL [Suspect]
     Indication: SOMNOLENCE
     Route: 048
     Dates: start: 20131101, end: 20140212
  2. NUVIGIL [Suspect]

REACTIONS (19)
  - Anger [None]
  - Psychotic disorder [None]
  - Mental impairment [None]
  - Depression [None]
  - Mania [None]
  - Aggression [None]
  - Hostility [None]
  - Emotional disorder [None]
  - Impatience [None]
  - Delusion [None]
  - Feeling abnormal [None]
  - Social avoidant behaviour [None]
  - Impulse-control disorder [None]
  - Completed suicide [None]
  - Homicide [None]
  - Self-injurious ideation [None]
  - Bipolar disorder [None]
  - Memory impairment [None]
  - Abnormal behaviour [None]
